FAERS Safety Report 8820878 (Version 1)
Quarter: 2012Q4

REPORT INFORMATION
  Report Type: 
  Country: SE (occurrence: SE)
  Receive Date: 20121002
  Receipt Date: 20121002
  Transmission Date: 20130627
  Serious: Yes (Hospitalization)
  Sender: FDA-Public Use
  Company Number: SE-ABBOTT-12P-150-0989672-00

PATIENT
  Age: 32 Year
  Sex: Female

DRUGS (5)
  1. ERGENYL [Suspect]
     Indication: PRODUCT USED FOR UNKNOWN INDICATION
     Dosage: Every cycle
  2. IKTORIVIL [Suspect]
     Indication: PRODUCT USED FOR UNKNOWN INDICATION
  3. INFLUENZA VACCINE [Suspect]
     Indication: IMMUNISATION
     Dates: start: 20111115, end: 20111115
  4. OLANZAPIN [Suspect]
     Indication: PRODUCT USED FOR UNKNOWN INDICATION
  5. THERALEN [Concomitant]
     Indication: PRODUCT USED FOR UNKNOWN INDICATION

REACTIONS (7)
  - Flushing [Unknown]
  - Pyrexia [Unknown]
  - Chills [Unknown]
  - Grand mal convulsion [Unknown]
  - Muscle spasms [Unknown]
  - Hallucination [Not Recovered/Not Resolved]
  - Confusional state [Not Recovered/Not Resolved]
